FAERS Safety Report 25472958 (Version 2)
Quarter: 2025Q3

REPORT INFORMATION
  Report Type: Spontaneous
  Country: EU (occurrence: EU)
  Receive Date: 20250624
  Receipt Date: 20250701
  Transmission Date: 20251021
  Serious: Yes (Other)
  Sender: ALIMERA
  Company Number: EU-ALIMERA SCIENCES LIMITED-FR-A16013-25-000194

PATIENT
  Age: 66 Year
  Sex: Male

DRUGS (1)
  1. ILUVIEN [Suspect]
     Active Substance: FLUOCINOLONE ACETONIDE
     Indication: Product used for unknown indication
     Dosage: 0.25 MICROGRAM, QD-UNKNOWN EYE
     Route: 031
     Dates: start: 20250610

REACTIONS (5)
  - Conjunctivitis [Unknown]
  - Conjunctival hyperaemia [Unknown]
  - Medical device removal [Recovered/Resolved]
  - Patient uncooperative [Unknown]
  - Device implantation error [Unknown]

NARRATIVE: CASE EVENT DATE: 20250610
